FAERS Safety Report 6321150-9 (Version None)
Quarter: 2009Q3

REPORT INFORMATION
  Report Type: 
  Country: None (occurrence: None)
  Receive Date: 20090822
  Receipt Date: 20090406
  Transmission Date: 20100115
  Serious: No
  Sender: FDA-Public Use
  Company Number: US-ABBOTT-08P-163-0490753-00

PATIENT
  Sex: Male

DRUGS (2)
  1. NIASPAN [Suspect]
     Indication: HIGH DENSITY LIPOPROTEIN DECREASED
     Route: 048
     Dates: start: 20070601
  2. NIASPAN [Suspect]
     Dosage: 1000 MG DAILY AT BEDTIME

REACTIONS (2)
  - DRUG INEFFECTIVE [None]
  - FLUSHING [None]
